FAERS Safety Report 5699750-9 (Version None)
Quarter: 2008Q2

REPORT INFORMATION
  Report Type: 
  Country: None (occurrence: None)
  Receive Date: 20080410
  Receipt Date: 20080327
  Transmission Date: 20081010
  Serious: Yes (Other)
  Sender: FDA-Public Use
  Company Number: US-BAYER-200818214NA

PATIENT
  Age: 59 Year
  Sex: Female

DRUGS (5)
  1. AVELOX [Suspect]
     Indication: PNEUMONIA
     Route: 048
  2. LISINOPRIL [Concomitant]
     Indication: HYPERTENSION
  3. ZOCOR [Concomitant]
     Indication: BLOOD CHOLESTEROL INCREASED
  4. COMBIVENT [Concomitant]
     Indication: HYPERSENSITIVITY
     Dates: start: 20060101
  5. ALBUTEROL [Concomitant]
     Indication: HYPERSENSITIVITY
     Dates: start: 20060101

REACTIONS (3)
  - DYSPNOEA [None]
  - HYPERSENSITIVITY [None]
  - RASH GENERALISED [None]
